FAERS Safety Report 19173145 (Version 1)
Quarter: 2021Q2

REPORT INFORMATION
  Report Type: Spontaneous
  Country: JP (occurrence: JP)
  Receive Date: 20210423
  Receipt Date: 20210423
  Transmission Date: 20210717
  Serious: Yes (Hospitalization)
  Sender: FDA-Public Use
  Company Number: JP-GLAXOSMITHKLINE-JP2021088333

PATIENT
  Age: 8 Decade

DRUGS (1)
  1. VALTREX [Suspect]
     Active Substance: VALACYCLOVIR HYDROCHLORIDE
     Dosage: 500 MG, QD, 14 DAYS
     Route: 048

REACTIONS (3)
  - Product use issue [Unknown]
  - Prescribed underdose [Unknown]
  - Hospitalisation [Unknown]
